FAERS Safety Report 20556260 (Version 6)
Quarter: 2022Q2

REPORT INFORMATION
  Report Type: Spontaneous
  Country: SI (occurrence: SI)
  Receive Date: 20220305
  Receipt Date: 20220623
  Transmission Date: 20220721
  Serious: Yes (Hospitalization, Other)
  Sender: FDA-Public Use
  Company Number: SI-KYOWAKIRIN-2021AKK000269

PATIENT
  Age: 83 Year
  Sex: Male

DRUGS (17)
  1. ALFACALCIDOL [Suspect]
     Active Substance: ALFACALCIDOL
     Indication: Product used for unknown indication
     Dosage: 2.5 UG
     Route: 065
  2. ALFACALCIDOL [Suspect]
     Active Substance: ALFACALCIDOL
     Dosage: 5 UG
     Route: 065
  3. ALFACALCIDOL [Suspect]
     Active Substance: ALFACALCIDOL
     Dosage: 0.5 UG
     Route: 065
  4. BISOPROLOL FUMARATE [Suspect]
     Active Substance: BISOPROLOL FUMARATE
     Indication: Product used for unknown indication
     Dosage: 2.5 MG (IN THE MORNING)
     Route: 065
  5. CEFTRIAXONE SODIUM [Suspect]
     Active Substance: CEFTRIAXONE SODIUM
     Indication: Product used for unknown indication
     Dosage: 2 G, QD; 2 G (FOR 24HOURS)
     Route: 042
  6. ACETAMINOPHEN [Suspect]
     Active Substance: ACETAMINOPHEN
     Indication: Product used for unknown indication
     Dosage: 500 MG, PRN AS NEEDED
     Route: 065
  7. ZOLPIDEM TARTRATE [Suspect]
     Active Substance: ZOLPIDEM TARTRATE
     Indication: Product used for unknown indication
     Dosage: 5 MG, QD; 5 MG (IN THE EVENING)
     Route: 065
  8. PANTOPRAZOLE SODIUM [Suspect]
     Active Substance: PANTOPRAZOLE SODIUM
     Indication: Product used for unknown indication
     Route: 065
  9. CHOLECALCIFEROL [Suspect]
     Active Substance: CHOLECALCIFEROL
     Indication: Product used for unknown indication
     Dosage: 1 DF, QM; QMO;
     Route: 065
  10. DARBEPOETIN ALFA [Suspect]
     Active Substance: DARBEPOETIN ALFA
     Indication: Product used for unknown indication
     Dosage: UNK, QOW; (100 + 150 MCG EVERY 14 DAY)
     Route: 065
  11. FERRIC HYDROXIDE [Suspect]
     Active Substance: FERRIC HYDROXIDE
     Indication: Product used for unknown indication
     Dosage: 4 DF, TID(3 X 4 TBL WITH FOOD)
     Route: 065
  12. VANCOMYCIN [Suspect]
     Active Substance: VANCOMYCIN
     Indication: Product used for unknown indication
     Dosage: 1 G
     Route: 042
  13. FOLIC ACID [Suspect]
     Active Substance: FOLIC ACID
     Indication: Product used for unknown indication
     Dosage: 1 DF, BID; (2 X 1 TBL)
     Route: 065
  14. DIGOXIN [Suspect]
     Active Substance: DIGOXIN
     Indication: Product used for unknown indication
     Route: 065
  15. LACIDIPINE [Suspect]
     Active Substance: LACIDIPINE
     Indication: Product used for unknown indication
     Dosage: 4 MG
     Route: 065
  16. WARFARIN SODIUM [Suspect]
     Active Substance: WARFARIN SODIUM
     Indication: Product used for unknown indication
     Dosage: UNK (ACCORDING TO THE SCHEME)
     Route: 065
  17. PANTOPRAZOLE SODIUM [Suspect]
     Active Substance: PANTOPRAZOLE SODIUM
     Indication: Product used for unknown indication
     Dosage: 20 MG
     Route: 065

REACTIONS (23)
  - Laboratory test abnormal [Unknown]
  - Asthenia [Unknown]
  - Splenomegaly [Unknown]
  - White blood cell count increased [Unknown]
  - Dysphagia [Unknown]
  - Platelet count decreased [Unknown]
  - Heart rate increased [Recovered/Resolved]
  - Oxygen saturation decreased [Unknown]
  - Haematocrit decreased [Unknown]
  - Device related sepsis [Unknown]
  - Lymphocyte count increased [Unknown]
  - Malaise [Unknown]
  - International normalised ratio increased [Unknown]
  - PCO2 decreased [Unknown]
  - Cough [Unknown]
  - Encephalomalacia [Unknown]
  - Tachycardia [Unknown]
  - Dysarthria [Unknown]
  - Procalcitonin abnormal [Unknown]
  - Monocyte count increased [Unknown]
  - C-reactive protein increased [Unknown]
  - Hypotension [Recovered/Resolved]
  - PO2 decreased [Unknown]

NARRATIVE: CASE EVENT DATE: 20200907
